FAERS Safety Report 15277404 (Version 2)
Quarter: 2018Q3

REPORT INFORMATION
  Report Type: Spontaneous
  Country: CA (occurrence: CA)
  Receive Date: 20180814
  Receipt Date: 20180828
  Transmission Date: 20181010
  Serious: Yes (Other)
  Sender: FDA-Public Use
  Company Number: CA-AMGEN-CANSP2017174922

PATIENT
  Age: 63 Year
  Sex: Female

DRUGS (31)
  1. ACTEMRA [Suspect]
     Active Substance: TOCILIZUMAB
     Dosage: 8 MG/KG, UNK
     Route: 042
  2. METHOTREXATE. [Suspect]
     Active Substance: METHOTREXATE
     Dosage: 20 MG, UNK
     Route: 048
  3. ENBREL [Suspect]
     Active Substance: ETANERCEPT
     Indication: RHEUMATOID ARTHRITIS
     Dosage: 50 MG, QWK
     Route: 058
  4. ACTEMRA [Suspect]
     Active Substance: TOCILIZUMAB
     Dosage: 8 MG/KG, UNK
     Route: 042
  5. CICLOSPORIN [Suspect]
     Active Substance: CYCLOSPORINE
     Indication: RHEUMATOID ARTHRITIS
     Route: 065
  6. XELJANZ [Concomitant]
     Active Substance: TOFACITINIB CITRATE
     Indication: RHEUMATOID ARTHRITIS
     Dosage: 5 MG, BID
     Route: 048
  7. ACTEMRA [Suspect]
     Active Substance: TOCILIZUMAB
     Indication: RHEUMATOID ARTHRITIS
     Dosage: 8 MG/KG, UNK
     Route: 042
  8. METHOTREXATE SODIUM. [Suspect]
     Active Substance: METHOTREXATE SODIUM
     Dosage: 20 MG, UNK
     Route: 048
  9. ENBREL [Suspect]
     Active Substance: ETANERCEPT
     Dosage: 50 MG, QWK
     Route: 058
  10. APO?HYDROXYQUINE [Suspect]
     Active Substance: HYDROXYCHLOROQUINE SULFATE
     Indication: RHEUMATOID ARTHRITIS
     Dosage: UNK
     Route: 058
  11. APO?HYDROXYQUINE [Suspect]
     Active Substance: HYDROXYCHLOROQUINE SULFATE
     Dosage: UNK
     Route: 048
  12. METHOTREXATE SODIUM. [Suspect]
     Active Substance: METHOTREXATE SODIUM
     Indication: RHEUMATOID ARTHRITIS
     Dosage: 20 MG, UNK
     Route: 048
  13. RITUXAN [Suspect]
     Active Substance: RITUXIMAB
     Indication: RHEUMATOID ARTHRITIS
     Dosage: UNK
     Route: 065
  14. SULFASALAZINE. [Suspect]
     Active Substance: SULFASALAZINE
     Indication: RHEUMATOID ARTHRITIS
     Dosage: UNK
     Route: 048
  15. METHOTREXATE. [Suspect]
     Active Substance: METHOTREXATE
     Dosage: 20 MG, UNK
     Route: 058
  16. APO?HYDROXYQUINE [Suspect]
     Active Substance: HYDROXYCHLOROQUINE SULFATE
     Dosage: UNK
     Route: 058
  17. REMICADE [Suspect]
     Active Substance: INFLIXIMAB
     Indication: RHEUMATOID ARTHRITIS
     Dosage: 3 MG, UNK
     Route: 042
  18. PLAQUENIL [Suspect]
     Active Substance: HYDROXYCHLOROQUINE SULFATE
     Indication: RHEUMATOID ARTHRITIS
     Route: 065
  19. LEFLUNOMIDE. [Suspect]
     Active Substance: LEFLUNOMIDE
     Indication: PRODUCT USED FOR UNKNOWN INDICATION
     Route: 065
  20. METHOTREXATE SODIUM. [Suspect]
     Active Substance: METHOTREXATE SODIUM
     Dosage: 20 MG, UNK
     Route: 058
  21. METHOTREXATE. [Suspect]
     Active Substance: METHOTREXATE
     Indication: RHEUMATOID ARTHRITIS
     Dosage: 20 MG, UNK
     Route: 048
  22. NEORAL [Suspect]
     Active Substance: CYCLOSPORINE
     Indication: PRODUCT USED FOR UNKNOWN INDICATION
     Dosage: UNK
     Route: 058
  23. ORENCIA [Suspect]
     Active Substance: ABATACEPT
     Dosage: 125 MG, UNK
     Route: 058
  24. HYDROXYCHLOROQUINE [Suspect]
     Active Substance: HYDROXYCHLOROQUINE
     Dosage: UNK
     Route: 048
  25. APO?LEFLUNOMIDE [Suspect]
     Active Substance: LEFLUNOMIDE
     Indication: RHEUMATOID ARTHRITIS
     Route: 065
  26. NEORAL [Suspect]
     Active Substance: CYCLOSPORINE
     Route: 048
  27. NEORAL [Suspect]
     Active Substance: CYCLOSPORINE
     Dosage: UNK
     Route: 058
  28. ORENCIA [Suspect]
     Active Substance: ABATACEPT
     Indication: RHEUMATOID ARTHRITIS
     Dosage: 125 MG, UNK
     Route: 058
  29. HUMIRA [Suspect]
     Active Substance: ADALIMUMAB
     Indication: RHEUMATOID ARTHRITIS
     Route: 065
  30. HYDROXYCHLOROQUINE [Suspect]
     Active Substance: HYDROXYCHLOROQUINE
     Indication: RHEUMATOID ARTHRITIS
     Dosage: UNK
     Route: 058
  31. HYDROXYCHLOROQUINE [Suspect]
     Active Substance: HYDROXYCHLOROQUINE
     Route: 058

REACTIONS (3)
  - Drug ineffective [Unknown]
  - Drug intolerance [Recovered/Resolved]
  - Treatment failure [Unknown]
